FAERS Safety Report 10010675 (Version 3)
Quarter: 2014Q2

REPORT INFORMATION
  Report Type: Spontaneous
  Country: NL (occurrence: NL)
  Receive Date: 20140314
  Receipt Date: 20140425
  Transmission Date: 20141212
  Serious: Yes (Other)
  Sender: FDA-Public Use
  Company Number: NL-RANBAXY-2014R1-78822

PATIENT
  Age: 51 Year
  Sex: Male
  Weight: 140 kg

DRUGS (3)
  1. VALACYCLOVIR [Suspect]
     Indication: HERPES OPHTHALMIC
     Dosage: 500 MG, TID
     Route: 048
     Dates: start: 20140114, end: 20140129
  2. ACICLOVIR [Concomitant]
     Indication: PRODUCT USED FOR UNKNOWN INDICATION
     Dosage: 1 DF 5 TIMES DAILY
     Route: 047
     Dates: start: 20131009
  3. PRED FORTE EYE DROPS 10MG/ML, 5ML VIAL [Concomitant]
     Indication: PRODUCT USED FOR UNKNOWN INDICATION
     Dosage: 1 DF, Q4H
     Route: 047
     Dates: start: 20131009

REACTIONS (2)
  - Therapeutic response changed [Recovering/Resolving]
  - Pathogen resistance [Recovering/Resolving]
